FAERS Safety Report 21903429 (Version 2)
Quarter: 2024Q3

REPORT INFORMATION
  Report Type: Spontaneous
  Country: US (occurrence: US)
  Receive Date: 20230124
  Receipt Date: 20240828
  Transmission Date: 20241017
  Serious: No
  Sender: SANOFI AVENTIS
  Company Number: US-SA-SAC20230123000328

PATIENT

DRUGS (9)
  1. CERDELGA [Suspect]
     Active Substance: ELIGLUSTAT
     Indication: Gaucher^s disease type III
     Dosage: 84 MG, QD
     Route: 048
     Dates: start: 20170419
  2. FAMOTIDINE [Concomitant]
     Active Substance: FAMOTIDINE
  3. ALBUTEROL [Concomitant]
     Active Substance: ALBUTEROL
     Dosage: 90 MCG/INH INHALATION AEROSOL WITH ADAPTER, 2 PUFFS, INH-ORAL, QID, PRN, 6 REFILLS
  4. VITAMIN D3 [Concomitant]
     Active Substance: CHOLECALCIFEROL
     Dosage: 4000 UNITS (2 TABS) ORAL TABLET, 2 TABS, ORAL, QDAY
     Route: 048
  5. SERTRALINE [Concomitant]
     Active Substance: SERTRALINE HYDROCHLORIDE
     Dosage: 150 MG/DAY
  6. QUETIAPINE [Concomitant]
     Active Substance: QUETIAPINE
     Dosage: 900 MG PER DAY
  7. HALOPERIDOL [Concomitant]
     Active Substance: HALOPERIDOL
     Dosage: 2 MG, BID
     Route: 048
  8. CLOZAPINE [Concomitant]
     Active Substance: CLOZAPINE
     Dosage: 200 MG, QD
     Dates: start: 202209
  9. DIVALPROEX SODIUM [Concomitant]
     Active Substance: DIVALPROEX SODIUM
     Dosage: 2 DF, HS
     Route: 048

REACTIONS (1)
  - Off label use [Unknown]

NARRATIVE: CASE EVENT DATE: 20170419
